FAERS Safety Report 15767298 (Version 1)
Quarter: 2018Q4

REPORT INFORMATION
  Report Type: Spontaneous
  Country: BG (occurrence: BG)
  Receive Date: 20181227
  Receipt Date: 20181227
  Transmission Date: 20190205
  Serious: Yes (Death)
  Sender: FDA-Public Use
  Company Number: BG-ASTRAZENECA-2018SF68568

PATIENT
  Age: 70 Year
  Sex: Male

DRUGS (1)
  1. BRILIQUE [Suspect]
     Active Substance: TICAGRELOR
     Dosage: 90.0MG UNKNOWN
     Route: 048

REACTIONS (2)
  - Myocardial infarction [Fatal]
  - Arrhythmia [Fatal]
